FAERS Safety Report 18653738 (Version 4)
Quarter: 2022Q1

REPORT INFORMATION
  Report Type: Spontaneous
  Country: US (occurrence: US)
  Receive Date: 20201223
  Receipt Date: 20220329
  Transmission Date: 20220423
  Serious: Yes (Hospitalization, Other)
  Sender: FDA-Public Use
  Company Number: US-LUPIN PHARMACEUTICALS INC.-2020-10715

PATIENT
  Sex: Female

DRUGS (19)
  1. LEVETIRACETAM [Suspect]
     Active Substance: LEVETIRACETAM
     Indication: Antidepressant therapy
     Dosage: UNK
     Route: 065
     Dates: start: 2009
  2. LEVETIRACETAM [Suspect]
     Active Substance: LEVETIRACETAM
     Indication: Prophylaxis against alcoholic withdrawal syndrome
  3. QUETIAPINE FUMARATE [Suspect]
     Active Substance: QUETIAPINE FUMARATE
     Indication: Antidepressant therapy
     Dosage: UNK
     Route: 065
  4. SERTRALINE [Suspect]
     Active Substance: SERTRALINE HYDROCHLORIDE
     Indication: Antidepressant therapy
     Dosage: UNK
     Route: 065
  5. DULOXETINE [Suspect]
     Active Substance: DULOXETINE
     Indication: Psychotherapy
     Dosage: 120 MILLIGRAM, QD
     Route: 065
  6. LORAZEPAM [Suspect]
     Active Substance: LORAZEPAM
     Indication: Panic attack
     Dosage: 1 MILLIGRAM, BID
     Route: 065
     Dates: start: 2010
  7. LORAZEPAM [Suspect]
     Active Substance: LORAZEPAM
     Dosage: UNK, DOSE TAPERED
     Route: 065
  8. ARIPIPRAZOLE [Suspect]
     Active Substance: ARIPIPRAZOLE
     Indication: Antidepressant therapy
     Dosage: UNK
     Route: 065
  9. ZOLPIDEM [Suspect]
     Active Substance: ZOLPIDEM TARTRATE
     Indication: Antidepressant therapy
     Dosage: UNK
     Route: 065
  10. CITALOPRAM [Suspect]
     Active Substance: CITALOPRAM HYDROBROMIDE
     Indication: Antidepressant therapy
     Dosage: UNK
     Route: 065
  11. CLONAZEPAM [Suspect]
     Active Substance: CLONAZEPAM
     Indication: Panic attack
     Dosage: 1 MILLIGRAM, TID
     Route: 065
     Dates: start: 2010
  12. CLONAZEPAM [Suspect]
     Active Substance: CLONAZEPAM
     Dosage: UNK, DOSE TAPERED
     Route: 065
  13. TRAZODONE [Suspect]
     Active Substance: TRAZODONE HYDROCHLORIDE
     Indication: Psychotherapy
     Dosage: UNK
     Route: 065
     Dates: start: 2009
  14. LITHIUM [Suspect]
     Active Substance: LITHIUM
     Indication: Antidepressant therapy
     Dosage: UNK
     Route: 065
  15. ALPRAZOLAM [Suspect]
     Active Substance: ALPRAZOLAM
     Indication: Antidepressant therapy
     Dosage: UNK
     Route: 065
     Dates: start: 2016
  16. ALPRAZOLAM [Suspect]
     Active Substance: ALPRAZOLAM
     Dosage: UNK, DOSE TAPERED
     Route: 065
  17. NALTREXONE [Concomitant]
     Active Substance: NALTREXONE
     Indication: Alcohol withdrawal syndrome
     Dosage: 50 MILLIGRAM, QD
     Route: 065
  18. LAMOTRIGINE [Concomitant]
     Active Substance: LAMOTRIGINE
     Indication: Seizure prophylaxis
     Dosage: UNK
     Route: 065
  19. MIRTAZAPINE [Concomitant]
     Active Substance: MIRTAZAPINE
     Indication: Psychotherapy
     Dosage: 30 MILLIGRAM, QD, NIGHTLY
     Route: 065

REACTIONS (7)
  - Orthostatic hypotension [Unknown]
  - Suicide attempt [Unknown]
  - Autonomic nervous system imbalance [Unknown]
  - Overdose [Unknown]
  - Syncope [Unknown]
  - Drug ineffective [Unknown]
  - Fall [Unknown]
